FAERS Safety Report 5648347-5 (Version None)
Quarter: 2008Q1

REPORT INFORMATION
  Report Type: 
  Country: None (occurrence: None)
  Receive Date: 20080304
  Receipt Date: 20080222
  Transmission Date: 20080703
  Serious: Yes (Hospitalization, Other)
  Sender: FDA-Public Use
  Company Number: GB-TEVA-167988ISR

PATIENT
  Sex: Male

DRUGS (1)
  1. TRIMETHOPRIM [Suspect]
     Indication: URINARY TRACT INFECTION
     Route: 048
     Dates: start: 20080205, end: 20080206

REACTIONS (3)
  - HAEMOGLOBIN ABNORMAL [None]
  - MOUTH ULCERATION [None]
  - RENAL IMPAIRMENT [None]
